FAERS Safety Report 13960388 (Version 1)
Quarter: 2017Q3

REPORT INFORMATION
  Report Type: Spontaneous
  Country: US (occurrence: US)
  Receive Date: 20170912
  Receipt Date: 20170912
  Transmission Date: 20171128
  Serious: No
  Sender: FDA-Public Use
  Company Number: US-ALLERGAN-1715886US

PATIENT
  Sex: Female

DRUGS (1)
  1. LEXAPRO [Suspect]
     Active Substance: ESCITALOPRAM OXALATE
     Indication: PRODUCT USED FOR UNKNOWN INDICATION

REACTIONS (6)
  - Hypersensitivity [Unknown]
  - Dysgeusia [Unknown]
  - Swollen tongue [Unknown]
  - Gingival swelling [Unknown]
  - Burning mouth syndrome [Unknown]
  - Discomfort [Unknown]
